FAERS Safety Report 4297752-0 (Version None)
Quarter: 2004Q1

REPORT INFORMATION
  Report Type: 
  Country: None (occurrence: None)
  Receive Date: 20040217
  Receipt Date: 20040217
  Transmission Date: 20041129
  Serious: No
  Sender: FDA-Public Use
  Company Number: None

PATIENT

DRUGS (1)
  1. DEPO-PROVERA [Suspect]

REACTIONS (5)
  - DEPRESSION [None]
  - FEELING ABNORMAL [None]
  - MALAISE [None]
  - METRORRHAGIA [None]
  - WEIGHT INCREASED [None]
